FAERS Safety Report 24438231 (Version 1)
Quarter: 2024Q4

REPORT INFORMATION
  Report Type: Spontaneous
  Country: NL (occurrence: NL)
  Receive Date: 20241015
  Receipt Date: 20241015
  Transmission Date: 20250115
  Serious: Yes (Life-Threatening)
  Sender: TEVA
  Company Number: None

PATIENT
  Age: 41 Year
  Sex: Male
  Weight: 95 kg

DRUGS (4)
  1. OLMESARTAN [Suspect]
     Active Substance: OLMESARTAN
     Indication: Hypertension
     Dosage: TABLET FO / BRAND NAME NOT SPECIFIED 1 X PER DAY 1 PIECE
     Route: 065
     Dates: start: 20000101
  2. METOPROLOL [Suspect]
     Active Substance: METOPROLOL
     Indication: Hypertension
     Dosage: BRAND NAME NOT SPECIFIED 1 PIECE PER DAY
     Route: 065
     Dates: start: 20000101
  3. AMLODIPINE [Suspect]
     Active Substance: AMLODIPINE BESYLATE
     Indication: Chest pain
     Dosage: BRAND NAME NOT SPECIFIED 1 X PER DAY 1 PIECE
     Route: 065
     Dates: start: 20200101, end: 20240910
  4. OMEPRAZOL CF [Concomitant]
     Indication: Product used for unknown indication
     Dosage: CAPSULE MSR
     Route: 065

REACTIONS (3)
  - Arrhythmia [Recovering/Resolving]
  - Sleep disorder [Recovering/Resolving]
  - Headache [Recovering/Resolving]
